FAERS Safety Report 5455358-1 (Version None)
Quarter: 2007Q3

REPORT INFORMATION
  Report Type: 
  Country: None (occurrence: None)
  Receive Date: 20070913
  Receipt Date: 20070913
  Transmission Date: 20080115
  Serious: Yes (Hospitalization)
  Sender: FDA-Public Use
  Company Number: None

PATIENT
  Age: 57 Year
  Sex: Male
  Weight: 120.2032 kg

DRUGS (7)
  1. AVELOX [Suspect]
     Indication: FOLLICULITIS
     Dosage: 400MG  X1  PO
     Route: 048
     Dates: start: 20070625, end: 20070626
  2. LOTREL [Concomitant]
  3. PRILOSEC [Concomitant]
  4. PROSCAR [Concomitant]
  5. FLOMAX [Concomitant]
  6. XENICAL [Concomitant]
  7. ECOTRIN [Concomitant]

REACTIONS (6)
  - ANAPHYLACTOID REACTION [None]
  - CHROMATOPSIA [None]
  - INCOHERENT [None]
  - LETHARGY [None]
  - PHARYNGEAL OEDEMA [None]
  - RASH ERYTHEMATOUS [None]
